FAERS Safety Report 25734168 (Version 1)
Quarter: 2025Q3

REPORT INFORMATION
  Report Type: Spontaneous
  Country: CA (occurrence: CA)
  Receive Date: 20250828
  Receipt Date: 20250828
  Transmission Date: 20251021
  Serious: Yes (Hospitalization, Other)
  Sender: CELLTRION
  Company Number: CA-PFIZER INC-202400272790

PATIENT

DRUGS (3)
  1. INFLECTRA [Suspect]
     Active Substance: INFLIXIMAB-DYYB
     Indication: Ankylosing spondylitis
     Route: 042
     Dates: start: 20240710
  2. INFLECTRA [Suspect]
     Active Substance: INFLIXIMAB-DYYB
     Route: 042
     Dates: start: 20240807
  3. CIMZIA [Concomitant]
     Active Substance: CERTOLIZUMAB PEGOL
     Dates: start: 20210521

REACTIONS (11)
  - Abscess [Recovered/Resolved]
  - Clostridium difficile colitis [Unknown]
  - Cardiac arrest [Unknown]
  - Ileostomy [Unknown]
  - Infection [Recovered/Resolved]
  - Intestinal perforation [Unknown]
  - Sepsis [Unknown]
  - Intestinal resection [Unknown]
  - Condition aggravated [Unknown]
  - Oral herpes [Unknown]
  - Off label use [Unknown]

NARRATIVE: CASE EVENT DATE: 20240101
